FAERS Safety Report 6073285-6 (Version None)
Quarter: 2009Q1

REPORT INFORMATION
  Report Type: 
  Country: None (occurrence: None)
  Receive Date: 20090205
  Receipt Date: 20081208
  Transmission Date: 20090719
  Serious: Yes (Hospitalization)
  Sender: FDA-Public Use
  Company Number: 2008EU002922

PATIENT
  Age: 13 Year
  Sex: Female

DRUGS (8)
  1. PROGRAF [Suspect]
     Indication: LUNG TRANSPLANT
     Dosage: 3.5 MG, BID, ORAL 3 MG, UID/QD, ORAL UNKNOWN/D, ORAL
     Route: 048
     Dates: start: 20080101, end: 20081116
  2. PROGRAF [Suspect]
     Indication: LUNG TRANSPLANT
     Dosage: 3.5 MG, BID, ORAL 3 MG, UID/QD, ORAL UNKNOWN/D, ORAL
     Route: 048
     Dates: start: 20081117, end: 20081117
  3. PROGRAF [Suspect]
     Indication: LUNG TRANSPLANT
     Dosage: 3.5 MG, BID, ORAL 3 MG, UID/QD, ORAL UNKNOWN/D, ORAL
     Route: 048
     Dates: start: 20080101
  4. CELLCEPT [Concomitant]
  5. CORTICOSTEROIDS [Concomitant]
  6. MOPRAL [Concomitant]
  7. ACYCLOVIR [Concomitant]
  8. VFEND [Concomitant]

REACTIONS (7)
  - CELL DEATH [None]
  - CHOLESTASIS [None]
  - CONVULSION [None]
  - DRUG ADMINISTRATION ERROR [None]
  - DRUG LEVEL FLUCTUATING [None]
  - LIVER INJURY [None]
  - OFF LABEL USE [None]
